FAERS Safety Report 4499709-3 (Version None)
Quarter: 2004Q4

REPORT INFORMATION
  Report Type: 
  Country: None (occurrence: None)
  Receive Date: 20041108
  Receipt Date: 20041021
  Transmission Date: 20050328
  Serious: Yes (Hospitalization)
  Sender: FDA-Public Use
  Company Number: DSA_24660_2004

PATIENT
  Age: 83 Year
  Sex: Female

DRUGS (5)
  1. DILTIAZEM HYDROCHLORIDE [Suspect]
     Indication: MYOCARDIAL ISCHAEMIA
     Dosage: 300 MG Q DAY PO
     Route: 048
     Dates: start: 20040512, end: 20040514
  2. NITROGLYCERIN [Concomitant]
  3. CORVASAL [Concomitant]
  4. NITROGLYCERIN [Concomitant]
  5. KARDEGIC [Concomitant]

REACTIONS (1)
  - ACUTE GENERALISED EXANTHEMATOUS PUSTULOSIS [None]
